FAERS Safety Report 9975315 (Version 1)
Quarter: 2014Q1

REPORT INFORMATION
  Report Type: Report from Study
  Country: US (occurrence: US)
  Receive Date: 20140306
  Receipt Date: 20140306
  Transmission Date: 20141002
  Serious: No
  Sender: FDA-Public Use
  Company Number: US-ABBVIE-13P-163-1161333-00

PATIENT
  Sex: Female

DRUGS (7)
  1. HUMIRA [Suspect]
     Indication: ANKYLOSING SPONDYLITIS
     Dates: start: 20130514
  2. METHOTREXAT [Concomitant]
     Indication: ANKYLOSING SPONDYLITIS
  3. TRAMADOL [Concomitant]
     Indication: ANKYLOSING SPONDYLITIS
  4. MELOXICAM [Concomitant]
     Indication: ANKYLOSING SPONDYLITIS
  5. SINGULAIR [Concomitant]
     Indication: ASTHMA
  6. NASONEX [Concomitant]
     Indication: ASTHMA
  7. CLARITIN-D [Concomitant]
     Indication: ASTHMA

REACTIONS (1)
  - Injection site pain [Not Recovered/Not Resolved]
